FAERS Safety Report 13240659 (Version 1)
Quarter: 2017Q1

REPORT INFORMATION
  Report Type: Other
  Country: None (occurrence: US)
  Receive Date: 20170216
  Receipt Date: 20170216
  Transmission Date: 20170428
  Serious: Yes (Other)
  Sender: FDA-Public Use
  Company Number: US-STERIS CORPORATION-1063199

PATIENT

DRUGS (1)
  1. KINDEST KARE AIR-INFUSED FOAM ANTISEPTIC HANDRUB [Suspect]
     Active Substance: ALCOHOL

REACTIONS (1)
  - Adverse event [Recovered/Resolved]
